FAERS Safety Report 21825633 (Version 1)
Quarter: 2023Q1

REPORT INFORMATION
  Report Type: Report from Study
  Country: CO (occurrence: CO)
  Receive Date: 20230105
  Receipt Date: 20230105
  Transmission Date: 20230417
  Serious: Yes (Other)
  Sender: FDA-Public Use
  Company Number: CO-ABBVIE-4257998

PATIENT
  Age: 8 Year
  Sex: Female
  Weight: 27 kg

DRUGS (1)
  1. HUMIRA [Suspect]
     Active Substance: ADALIMUMAB
     Indication: Juvenile idiopathic arthritis
     Dosage: 20 MG
     Route: 058
     Dates: start: 20211007, end: 20211118

REACTIONS (3)
  - Eye opacity [Not Recovered/Not Resolved]
  - Visual impairment [Not Recovered/Not Resolved]
  - Uveitis [Not Recovered/Not Resolved]

NARRATIVE: CASE EVENT DATE: 20220201
